FAERS Safety Report 19186515 (Version 3)
Quarter: 2021Q2

REPORT INFORMATION
  Report Type: Report from Study
  Country: None (occurrence: IL)
  Receive Date: 20210428
  Receipt Date: 20210609
  Transmission Date: 20210717
  Serious: Yes (Other)
  Sender: FDA-Public Use
  Company Number: IL-ABBVIE-21K-082-3878087-00

PATIENT
  Age: 71 Year
  Sex: Female

DRUGS (2)
  1. DUODOPA [Suspect]
     Active Substance: CARBIDOPA\LEVODOPA
     Indication: PARKINSON^S DISEASE
     Dosage: MORNING DOSAGE(ML) 11.0 , CONTINUOUS DOSAGE (ML/H)  3.5 , EXTRA DOSAGE (ML)  1.2
     Route: 050
     Dates: start: 20210119, end: 20210511
  2. DUODOPA [Suspect]
     Active Substance: CARBIDOPA\LEVODOPA

REACTIONS (4)
  - Chest injury [Unknown]
  - Computerised tomogram abnormal [Unknown]
  - Drug ineffective [Not Recovered/Not Resolved]
  - Fall [Unknown]

NARRATIVE: CASE EVENT DATE: 2021
